FAERS Safety Report 23250041 (Version 2)
Quarter: 2024Q2

REPORT INFORMATION
  Report Type: Other
  Country: ES (occurrence: None)
  Receive Date: 20231201
  Receipt Date: 20240422
  Transmission Date: 20240715
  Serious: Yes (Other)
  Sender: FDA-Public Use
  Company Number: ES-ROCHE-3466268

PATIENT

DRUGS (6)
  1. RITUXIMAB [Suspect]
     Active Substance: RITUXIMAB
     Indication: Diffuse large B-cell lymphoma
     Dosage: FOR 4 DOSES (DAYS 1, 8, 15, AND 22 OF CYCLE 1) WITH UP TO AN ADDITIONAL 4 QW DOSES AT THE DISCRETION
     Route: 042
  2. RITUXIMAB [Suspect]
     Active Substance: RITUXIMAB
     Indication: Follicular lymphoma
  3. PARSACLISIB [Suspect]
     Active Substance: PARSACLISIB
     Indication: Diffuse large B-cell lymphoma
     Dosage: FOR 8 WEEKS
     Route: 048
  4. PARSACLISIB [Suspect]
     Active Substance: PARSACLISIB
     Indication: Follicular lymphoma
     Route: 048
  5. BENDAMUSTINE [Suspect]
     Active Substance: BENDAMUSTINE
     Indication: B-cell lymphoma
     Dosage: ON DAYS 1 AND 2 OF EACH 28-DAY CYCLE FOR {/=6 CYCLES
     Route: 042
  6. BENDAMUSTINE [Suspect]
     Active Substance: BENDAMUSTINE
     Indication: Follicular lymphoma

REACTIONS (21)
  - Pneumonia [Unknown]
  - Neutropenia [Unknown]
  - Diarrhoea [Unknown]
  - Rash [Unknown]
  - Renal failure [Unknown]
  - Pneumonia streptococcal [Unknown]
  - Rash maculo-papular [Unknown]
  - Device related infection [Unknown]
  - Clostridium difficile colitis [Unknown]
  - Anaemia [Unknown]
  - Blood creatinine increased [Unknown]
  - Abdominal pain [Unknown]
  - Asthenia [Unknown]
  - Nausea [Unknown]
  - Spinal column injury [Unknown]
  - Gastrointestinal haemorrhage [Unknown]
  - Pneumococcal infection [Unknown]
  - Pyrexia [Unknown]
  - Deep vein thrombosis [Unknown]
  - Amoebic colitis [Unknown]
  - Renal haemorrhage [Unknown]
